FAERS Safety Report 5006098-4 (Version None)
Quarter: 2006Q2

REPORT INFORMATION
  Report Type: 
  Country: None (occurrence: None)
  Receive Date: 20060518
  Receipt Date: 20051216
  Transmission Date: 20061013
  Serious: Yes (Hospitalization)
  Sender: FDA-Public Use
  Company Number: US-MERCK-0512USA02647

PATIENT
  Age: 60 Year
  Sex: Female
  Weight: 82 kg

DRUGS (13)
  1. VIOXX [Suspect]
     Indication: OSTEOARTHRITIS
     Route: 048
     Dates: start: 20011016, end: 20040930
  2. VIOXX [Suspect]
     Route: 048
     Dates: start: 20011016, end: 20040930
  3. VIOXX [Suspect]
     Route: 048
     Dates: start: 20011016, end: 20040930
  4. VIOXX [Suspect]
     Route: 048
     Dates: start: 20011016, end: 20040930
  5. VIOXX [Suspect]
     Route: 048
     Dates: start: 20011016, end: 20040930
  6. VIOXX [Suspect]
     Route: 048
     Dates: start: 20011016, end: 20040930
  7. LIPITOR [Concomitant]
     Indication: BLOOD CHOLESTEROL
     Route: 065
     Dates: start: 20030401, end: 20030901
  8. LISINOPRIL [Concomitant]
     Route: 048
  9. ENDOCET [Concomitant]
     Route: 065
  10. TEMAZEPAM [Concomitant]
     Indication: INSOMNIA
     Route: 065
  11. PAXIL [Concomitant]
     Indication: ANXIETY
     Route: 065
     Dates: start: 20030101, end: 20030101
  12. PAXIL [Concomitant]
     Indication: DEPRESSION
     Route: 065
     Dates: start: 20030101, end: 20030101
  13. PRAVACHOL [Concomitant]
     Indication: BLOOD CHOLESTEROL
     Route: 065

REACTIONS (12)
  - ACUTE MYOCARDIAL INFARCTION [None]
  - ANGINA PECTORIS [None]
  - ANXIETY [None]
  - ATRIAL FIBRILLATION [None]
  - CONSTIPATION [None]
  - CORONARY ARTERY DISEASE [None]
  - DIZZINESS [None]
  - EMOTIONAL DISTRESS [None]
  - HYPERCHOLESTEROLAEMIA [None]
  - NAUSEA [None]
  - PARAESTHESIA [None]
  - PNEUMONIA [None]
